FAERS Safety Report 6608659-5 (Version None)
Quarter: 2010Q1

REPORT INFORMATION
  Report Type: 
  Country: None (occurrence: None)
  Receive Date: 20100301
  Receipt Date: 20100219
  Transmission Date: 20100710
  Serious: Yes (Other)
  Sender: FDA-Public Use
  Company Number: FR-SP-E2010-01087

PATIENT
  Age: 22 Year
  Sex: Female

DRUGS (1)
  1. TUBERSOL [Suspect]
     Indication: TUBERCULIN TEST
     Route: 065
     Dates: start: 20100101, end: 20100101

REACTIONS (5)
  - ARTHRALGIA [None]
  - HENOCH-SCHONLEIN PURPURA [None]
  - RASH [None]
  - RHEUMATIC FEVER [None]
  - SKIN LESION [None]
